FAERS Safety Report 17132006 (Version 2)
Quarter: 2020Q1

REPORT INFORMATION
  Report Type: Spontaneous
  Country: PL (occurrence: PL)
  Receive Date: 20191209
  Receipt Date: 20200214
  Transmission Date: 20200409
  Serious: Yes (Death, Other)
  Sender: FDA-Public Use
  Company Number: PL-AMGEN-POLSP2019201180

PATIENT
  Age: 60 Year
  Sex: Female
  Weight: 36 kg

DRUGS (5)
  1. FOLINIC ACID [Concomitant]
     Active Substance: LEUCOVORIN
     Indication: RECTAL CANCER RECURRENT
     Dosage: UNK UNK, CYCLICAL
     Dates: start: 201802
  2. OXALIPLATIN. [Suspect]
     Active Substance: OXALIPLATIN
     Indication: RECTAL CANCER RECURRENT
     Dosage: 85 MILLIGRAM/SQ. METER, CYCLICAL
     Route: 042
     Dates: start: 20180209
  3. PANITUMUMAB [Suspect]
     Active Substance: PANITUMUMAB
     Indication: RECTAL CANCER RECURRENT
     Dosage: 6 MILLIGRAM/KILOGRAM, CYCLICAL
     Route: 042
     Dates: start: 20180209, end: 20181205
  4. OXALIPLATIN. [Suspect]
     Active Substance: OXALIPLATIN
     Dosage: DOSE REDUCED, CYCLICAL
     Route: 042
     Dates: end: 20190102
  5. 5-FU [FLUOROURACIL] [Suspect]
     Active Substance: FLUOROURACIL
     Indication: RECTAL CANCER RECURRENT
     Dosage: 400+600 MG/M2, EVERY 2 WEEKS THEN BREAK HAS BEEN EXTENDED
     Route: 042
     Dates: start: 20180209, end: 20190102

REACTIONS (12)
  - Neuropathy peripheral [Unknown]
  - Death [Fatal]
  - Neutropenia [Unknown]
  - Palmar-plantar erythrodysaesthesia syndrome [Unknown]
  - Short-bowel syndrome [Unknown]
  - Cachexia [Unknown]
  - Rash [Unknown]
  - Dermatitis acneiform [Unknown]
  - Skin disorder [Unknown]
  - Diarrhoea [Unknown]
  - Electrolyte imbalance [Unknown]
  - Quality of life decreased [Unknown]

NARRATIVE: CASE EVENT DATE: 2018
